FAERS Safety Report 5485442-8 (Version None)
Quarter: 2007Q4

REPORT INFORMATION
  Report Type: 
  Country: None (occurrence: None)
  Receive Date: 20071010
  Receipt Date: 20071010
  Transmission Date: 20080405
  Serious: Yes (Life-Threatening, Hospitalization, Other)
  Sender: FDA-Public Use
  Company Number: None

PATIENT
  Sex: Male
  Weight: 74.8435 kg

DRUGS (2)
  1. HUMULIN R [Suspect]
     Indication: TYPE 1 DIABETES MELLITUS
     Dosage: 15-20 UNITS  2 TIMES PER DAY
     Dates: start: 20000101, end: 20071006
  2. HUMULIN N [Suspect]
     Indication: TYPE 1 DIABETES MELLITUS
     Dosage: 15-20 UNITS 2 TIMES PER DAY
     Dates: start: 20000101, end: 20071006

REACTIONS (3)
  - ACCIDENT [None]
  - HYPOGLYCAEMIA UNAWARENESS [None]
  - PHARMACEUTICAL PRODUCT COMPLAINT [None]
